FAERS Safety Report 6713557-2 (Version None)
Quarter: 2010Q2

REPORT INFORMATION
  Report Type: 
  Country: None (occurrence: None)
  Receive Date: 20100506
  Receipt Date: 20100426
  Transmission Date: 20101027
  Serious: Yes (Hospitalization, Other)
  Sender: FDA-Public Use
  Company Number: MX-JNJFOC-20100407683

PATIENT
  Age: 20 Year
  Sex: Male

DRUGS (1)
  1. CAELYX [Suspect]
     Indication: NON-HODGKIN'S LYMPHOMA
     Dosage: SECOND DOSE
     Route: 042

REACTIONS (2)
  - OFF LABEL USE [None]
  - RESPIRATORY FAILURE [None]
